FAERS Safety Report 10683992 (Version 4)
Quarter: 2015Q1

REPORT INFORMATION
  Report Type: Spontaneous
  Country: IL (occurrence: IL)
  Receive Date: 20141230
  Receipt Date: 20150220
  Transmission Date: 20150720
  Serious: Yes (Hospitalization)
  Sender: FDA-Public Use
  Company Number: IL-ABBVIE-14K-082-1315206-00

PATIENT
  Age: 51 Year
  Sex: Female

DRUGS (2)
  1. HUMIRA [Suspect]
     Active Substance: ADALIMUMAB
     Indication: CROHN^S DISEASE
     Route: 065
     Dates: start: 201306, end: 201410
  2. HUMIRA [Suspect]
     Active Substance: ADALIMUMAB
     Route: 065
     Dates: start: 20141028

REACTIONS (5)
  - Fistula discharge [Unknown]
  - Colectomy [Unknown]
  - Injection site hypersensitivity [Recovering/Resolving]
  - Injection site erythema [Recovering/Resolving]
  - Drug administered at inappropriate site [Unknown]

NARRATIVE: CASE EVENT DATE: 2014
